FAERS Safety Report 17495630 (Version 2)
Quarter: 2020Q2

REPORT INFORMATION
  Report Type: Spontaneous
  Country: US (occurrence: US)
  Receive Date: 20200303
  Receipt Date: 20200423
  Transmission Date: 20200713
  Serious: No
  Sender: FDA-Public Use
  Company Number: US-PURDUE-USA-2019-0149312

PATIENT
  Age: 13 Year
  Sex: Male

DRUGS (2)
  1. ADHANSIA XR [Suspect]
     Active Substance: METHYLPHENIDATE HYDROCHLORIDE
     Indication: ATTENTION DEFICIT HYPERACTIVITY DISORDER
     Dosage: 55 MG, DAILY
     Route: 048
     Dates: start: 20191106, end: 20191112
  2. ADHANSIA XR [Suspect]
     Active Substance: METHYLPHENIDATE HYDROCHLORIDE
     Dosage: 70 MG, DAILY
     Route: 048
     Dates: start: 20191112, end: 20191126

REACTIONS (2)
  - Insomnia [Unknown]
  - Drug ineffective [Unknown]

NARRATIVE: CASE EVENT DATE: 20191106
